FAERS Safety Report 6153240-8 (Version None)
Quarter: 2009Q2

REPORT INFORMATION
  Report Type: 
  Country: None (occurrence: None)
  Receive Date: 20090413
  Receipt Date: 20090404
  Transmission Date: 20091009
  Serious: Yes (Other)
  Sender: FDA-Public Use
  Company Number: US-ELI_LILLY_AND_COMPANY-US200904001549

PATIENT
  Age: 55 Year
  Sex: Female

DRUGS (3)
  1. FORTEO [Suspect]
     Dosage: 20 UG, UNK
     Dates: start: 20080901, end: 20090301
  2. CALCIUM CARBONATE [Concomitant]
     Dosage: 1.5 G, DAILY (1/D)
     Dates: end: 20090301
  3. ERGOCALCIFEROL [Concomitant]
     Dosage: 50000 U, UNK
     Dates: end: 20090301

REACTIONS (2)
  - HIP FRACTURE [None]
  - HYPERCALCAEMIA [None]
